FAERS Safety Report 10729282 (Version 1)
Quarter: 2015Q1

REPORT INFORMATION
  Report Type: Spontaneous
  Country: US (occurrence: None)
  Receive Date: 20150120
  Receipt Date: 20150120
  Transmission Date: 20150721
  Serious: No
  Sender: FDA-Public Use
  Company Number: None

PATIENT
  Age: 43 Year
  Sex: Female
  Weight: 63.5 kg

DRUGS (1)
  1. BOTOX [Suspect]
     Active Substance: ONABOTULINUMTOXINA
     Indication: SKIN COSMETIC PROCEDURE
     Dates: start: 20150107

REACTIONS (6)
  - Eye pain [None]
  - Panic attack [None]
  - Vision blurred [None]
  - Muscular weakness [None]
  - Anxiety [None]
  - Insomnia [None]

NARRATIVE: CASE EVENT DATE: 20150107
